FAERS Safety Report 24090819 (Version 2)
Quarter: 2024Q3

REPORT INFORMATION
  Report Type: Report from Study
  Country: CO (occurrence: CO)
  Receive Date: 20240715
  Receipt Date: 20240724
  Transmission Date: 20241017
  Serious: Yes (Hospitalization, Other)
  Sender: UCB
  Company Number: CO-UCBSA-2024035523

PATIENT
  Age: 9 Year
  Sex: Male

DRUGS (3)
  1. LACOSAMIDE [Suspect]
     Active Substance: LACOSAMIDE
     Indication: Epilepsy
     Dosage: 10 MILLILITER, 3X/DAY (TID)
     Route: 048
     Dates: start: 20240208
  2. LACOSAMIDE [Suspect]
     Active Substance: LACOSAMIDE
     Indication: Epilepsy
     Dosage: TABLET WHICH IS ADMINISTERED IN A DILUTED FORM 3 CC EVERY 12 HOURS
     Route: 048
     Dates: start: 20240523
  3. LEVETIRACETAM [Concomitant]
     Active Substance: LEVETIRACETAM
     Indication: Product used for unknown indication
     Dosage: UNK
     Route: 048
     Dates: start: 20230202

REACTIONS (6)
  - Acute lymphocytic leukaemia [Not Recovered/Not Resolved]
  - Radiotherapy [Unknown]
  - Seizure [Unknown]
  - Product availability issue [Unknown]
  - Product substitution issue [Unknown]
  - Wrong technique in product usage process [Unknown]

NARRATIVE: CASE EVENT DATE: 20240301
